FAERS Safety Report 5691772-7 (Version None)
Quarter: 2008Q1

REPORT INFORMATION
  Report Type: 
  Country: None (occurrence: None)
  Receive Date: 20080331
  Receipt Date: 20080312
  Transmission Date: 20080703
  Serious: Yes (Death, Other)
  Sender: FDA-Public Use
  Company Number: 200803IM000107

PATIENT
  Sex: Female

DRUGS (8)
  1. INTERFERON GAMMA-1B [Suspect]
     Indication: IMMUNOMODULATORY THERAPY
     Dosage: 0.025 MG/M2, EVERY 2 DAYS, INTRAVENOUS
     Route: 042
  2. CYCLOSPORINE [Suspect]
     Dosage: 1.25 MG/M2
  3. CYCLOPHOSPHAMIDE [Concomitant]
  4. THIOTEPA [Concomitant]
  5. CARBOPLATIN [Concomitant]
  6. CIPROFLOXACIN [Concomitant]
  7. FLUCONAZOLE [Concomitant]
  8. MESNA [Concomitant]

REACTIONS (2)
  - ACUTE RESPIRATORY DISTRESS SYNDROME [None]
  - SEPSIS [None]
